FAERS Safety Report 8695097 (Version 2)
Quarter: 2014Q3

REPORT INFORMATION
  Report Type: Spontaneous
  Country: US (occurrence: US)
  Receive Date: 20120731
  Receipt Date: 20140807
  Transmission Date: 20150326
  Serious: Yes (Hospitalization, Other)
  Sender: FDA-Public Use
  Company Number: US-009507513-1207USA009346

PATIENT
  Sex: Female

DRUGS (3)
  1. REGLAN [Concomitant]
     Active Substance: METOCLOPRAMIDE HYDROCHLORIDE
     Indication: IMPAIRED GASTRIC EMPTYING
     Dosage: 10 MG, 30 MIN A.C.
     Dates: start: 2005
  2. NUVARING [Suspect]
     Active Substance: ETHINYL ESTRADIOL\ETONOGESTREL
     Indication: CONTRACEPTION
     Dosage: UNK
     Route: 067
     Dates: start: 200906, end: 20090916
  3. NUVARING [Suspect]
     Active Substance: ETHINYL ESTRADIOL\ETONOGESTREL
     Indication: MENOMETRORRHAGIA

REACTIONS (18)
  - Dizziness [Unknown]
  - Headache [Unknown]
  - Pulmonary embolism [Unknown]
  - Pleural effusion [Unknown]
  - Atelectasis [Unknown]
  - Appendicectomy [Unknown]
  - Flat affect [Unknown]
  - Off label use [Unknown]
  - Visual acuity reduced [Unknown]
  - Dyspepsia [Unknown]
  - Migraine [Unknown]
  - Hypertension [Unknown]
  - Impaired gastric emptying [Not Recovered/Not Resolved]
  - Eructation [Unknown]
  - Gingival bleeding [Unknown]
  - Pyrexia [Unknown]
  - Inflammation [Unknown]
  - Diarrhoea [Unknown]

NARRATIVE: CASE EVENT DATE: 200906
